FAERS Safety Report 12223720 (Version 2)
Quarter: 2016Q4

REPORT INFORMATION
  Report Type: Spontaneous
  Country: US (occurrence: US)
  Receive Date: 20160330
  Receipt Date: 20161201
  Transmission Date: 20170207
  Serious: Yes (Hospitalization)
  Sender: FDA-Public Use
  Company Number: US-ACTELION-A-NJ2014-108410

PATIENT
  Age: 64 Year
  Sex: Female

DRUGS (2)
  1. VELETRI [Suspect]
     Active Substance: EPOPROSTENOL
     Indication: PULMONARY ARTERIAL HYPERTENSION
     Dosage: 39.5 NG/KG, PER MIN
     Route: 042
     Dates: start: 20120912
  2. WARFARIN [Concomitant]
     Active Substance: WARFARIN

REACTIONS (6)
  - Cold sweat [Unknown]
  - Catheter site inflammation [Unknown]
  - Dizziness [Unknown]
  - Dyspnoea [Unknown]
  - Device damage [Unknown]
  - Catheter placement [Unknown]
